FAERS Safety Report 7138159-8 (Version None)
Quarter: 2010Q4

REPORT INFORMATION
  Report Type: 
  Country: None (occurrence: None)
  Receive Date: 20101201
  Receipt Date: 20101201
  Transmission Date: 20110411
  Serious: No
  Sender: FDA-Public Use
  Company Number: None

PATIENT
  Age: 75 Year
  Sex: Male

DRUGS (17)
  1. REVLIMID [Suspect]
     Indication: MULTIPLE MYELOMA
     Dosage: 5MG DAILY ORALLY
     Route: 048
     Dates: start: 20070801
  2. COLCHICINE [Concomitant]
  3. ZYLOPRIM [Concomitant]
  4. ATIVAN [Concomitant]
  5. METOLAZONE [Concomitant]
  6. METOPROLOL TARTRATE [Concomitant]
  7. LASIX [Concomitant]
  8. K-TAB [Concomitant]
  9. COZAAR [Concomitant]
  10. NOVOLIN 70/30 [Concomitant]
  11. DIGOXIN [Suspect]
  12. PROAIR HFA [Concomitant]
  13. VICODIN [Concomitant]
  14. PROPECIA [Concomitant]
  15. PRILOSEC [Concomitant]
  16. NTG SL [Concomitant]
  17. VICODIN [Concomitant]

REACTIONS (3)
  - CARDIAC FAILURE CONGESTIVE [None]
  - CLOSTRIDIAL INFECTION [None]
  - PANCYTOPENIA [None]
